FAERS Safety Report 8284296-4 (Version None)
Quarter: 2012Q2

REPORT INFORMATION
  Report Type: 
  Country: None (occurrence: None)
  Receive Date: 20120413
  Receipt Date: 20120227
  Transmission Date: 20120825
  Serious: No
  Sender: FDA-Public Use
  Company Number: US-ASTRAZENECA-2012SE13332

PATIENT
  Sex: Male
  Weight: 79.4 kg

DRUGS (2)
  1. NEXIUM [Suspect]
     Route: 048
  2. MANY HERBAL SUPPLEMENTS INCLUDING ALOE VERA JUICE [Concomitant]

REACTIONS (4)
  - HAEMATEMESIS [None]
  - VOMITING [None]
  - OFF LABEL USE [None]
  - NAUSEA [None]
